FAERS Safety Report 18547416 (Version 1)
Quarter: 2020Q4

REPORT INFORMATION
  Report Type: Spontaneous
  Country: US (occurrence: US)
  Receive Date: 20201125
  Receipt Date: 20201125
  Transmission Date: 20210114
  Serious: Yes (Other)
  Sender: FDA-Public Use
  Company Number: US-PURDUE-USA-2020-0165041

PATIENT
  Sex: Female

DRUGS (4)
  1. OXYCODONE/ ACETAMINOPHEN TABLETS [Suspect]
     Active Substance: ACETAMINOPHEN\OXYCODONE HYDROCHLORIDE
     Indication: PRODUCT USED FOR UNKNOWN INDICATION
     Route: 048
  2. HYDROMORPHONE HCL ORAL SOLUTION (RHODES) [Suspect]
     Active Substance: HYDROMORPHONE HYDROCHLORIDE
     Indication: PRODUCT USED FOR UNKNOWN INDICATION
     Route: 048
  3. HYDROCODONE BITARTRATE AND ACETAMINOPHEN [Suspect]
     Active Substance: ACETAMINOPHEN\HYDROCODONE BITARTRATE
     Indication: PRODUCT USED FOR UNKNOWN INDICATION
     Route: 048
  4. TRAMADOL. [Suspect]
     Active Substance: TRAMADOL
     Indication: PRODUCT USED FOR UNKNOWN INDICATION
     Route: 065

REACTIONS (17)
  - Emotional distress [Unknown]
  - Mastication disorder [Unknown]
  - Tooth loss [Unknown]
  - Pain [Unknown]
  - Drug dependence [Unknown]
  - Learning disability [Unknown]
  - Cardiac disorder [Unknown]
  - Migraine [Unknown]
  - Dyspepsia [Unknown]
  - Depression [Unknown]
  - Overdose [Unknown]
  - Developmental delay [Unknown]
  - Hypertension [Unknown]
  - Degenerative bone disease [Unknown]
  - Vomiting [Unknown]
  - Gastritis [Unknown]
  - Anxiety [Unknown]
